FAERS Safety Report 9863113 (Version 1)
Quarter: 2014Q1

REPORT INFORMATION
  Report Type: Spontaneous
  Country: IT (occurrence: IT)
  Receive Date: 20140203
  Receipt Date: 20140203
  Transmission Date: 20141002
  Serious: Yes (Other)
  Sender: FDA-Public Use
  Company Number: IT-ASTRAZENECA-2014SE05476

PATIENT
  Age: 33671 Day
  Sex: Female

DRUGS (3)
  1. ZESTORETIC [Suspect]
     Indication: HYPERTENSION
     Dosage: 20+12.5 MG TABLETS, 0.5 DF, DAILY
     Route: 048
     Dates: start: 20130101, end: 20130823
  2. LASITONE [Suspect]
     Indication: HYPERTENSION
     Dosage: 25+37 MG HARD CAPSULES, 1 DF, DAILY
     Route: 048
     Dates: start: 20130101, end: 20130823
  3. CARDICOR [Concomitant]
     Dosage: 1.25 TABLETS

REACTIONS (6)
  - Dehydration [Recovering/Resolving]
  - Malaise [Recovering/Resolving]
  - Hyperkalaemia [Recovering/Resolving]
  - Hyponatraemia [Recovering/Resolving]
  - Hypotension [Recovering/Resolving]
  - Syncope [Recovering/Resolving]
